FAERS Safety Report 24795482 (Version 1)
Quarter: 2024Q4

REPORT INFORMATION
  Report Type: Spontaneous
  Country: US (occurrence: None)
  Receive Date: 20241231
  Receipt Date: 20241231
  Transmission Date: 20250115
  Serious: Yes (Life-Threatening, Disabling, Other)
  Sender: Public
  Company Number: None

PATIENT
  Age: 69 Year
  Sex: Female
  Weight: 50.85 kg

DRUGS (9)
  1. ZOLEDRONIC ACID [Suspect]
     Active Substance: ZOLEDRONIC ACID
     Indication: Osteoporosis
     Route: 042
     Dates: start: 20240105, end: 20240105
  2. VERAPAMIL [Concomitant]
     Active Substance: VERAPAMIL HYDROCHLORIDE
  3. ATORVASTATIN [Concomitant]
     Active Substance: ATORVASTATIN
  4. FINASTERIDE [Concomitant]
     Active Substance: FINASTERIDE
  5. ASPIRIN [Concomitant]
     Active Substance: ASPIRIN
  6. OCUVITE [Concomitant]
     Active Substance: VITAMINS
  7. VITAMIN D3 [Concomitant]
     Active Substance: CHOLECALCIFEROL
  8. VITAMIN B12 [Concomitant]
     Active Substance: CYANOCOBALAMIN
  9. NUTRAFOL [Concomitant]

REACTIONS (4)
  - Syncope [None]
  - Road traffic accident [None]
  - Ankle fracture [None]
  - Contusion [None]

NARRATIVE: CASE EVENT DATE: 20240107
